FAERS Safety Report 16342338 (Version 1)
Quarter: 2019Q2

REPORT INFORMATION
  Report Type: Spontaneous
  Country: US (occurrence: US)
  Receive Date: 20190416
  Receipt Date: 20190416
  Transmission Date: 20190711
  Serious: No
  Sender: FDA-Public Use
  Company Number: None

PATIENT
  Age: 60 Year
  Sex: Female

DRUGS (1)
  1. STELARA [Suspect]
     Active Substance: USTEKINUMAB
     Indication: CROHN^S DISEASE

REACTIONS (3)
  - Sleep disorder [None]
  - Loss of personal independence in daily activities [None]
  - Myalgia [None]

NARRATIVE: CASE EVENT DATE: 20190225
